FAERS Safety Report 6376442-4 (Version None)
Quarter: 2009Q3

REPORT INFORMATION
  Report Type: 
  Country: None (occurrence: None)
  Receive Date: 20090925
  Receipt Date: 20090921
  Transmission Date: 20100115
  Serious: Yes (Hospitalization, Other)
  Sender: FDA-Public Use
  Company Number: US-JNJFOC-20090906563

PATIENT
  Sex: Male

DRUGS (2)
  1. INVEGA [Suspect]
     Route: 048
  2. INVEGA [Suspect]
     Indication: DRUG THERAPY
     Route: 048

REACTIONS (8)
  - ANXIETY [None]
  - CORNEAL REFLEX DECREASED [None]
  - DIZZINESS [None]
  - FATIGUE [None]
  - NEPHROLITHIASIS [None]
  - PAIN IN EXTREMITY [None]
  - RESTLESSNESS [None]
  - STARING [None]
